FAERS Safety Report 8443458-3 (Version None)
Quarter: 2012Q2

REPORT INFORMATION
  Report Type: 
  Country: None (occurrence: None)
  Receive Date: 20120618
  Receipt Date: 20120604
  Transmission Date: 20120825
  Serious: No
  Sender: FDA-Public Use
  Company Number: US-JNJFOC-20120514365

PATIENT
  Sex: Female
  Weight: 68.04 kg

DRUGS (9)
  1. CYMBALTA [Concomitant]
     Indication: DEPRESSION
     Route: 065
     Dates: start: 20120101
  2. XANAX [Concomitant]
     Indication: ANXIETY
     Route: 065
     Dates: start: 20090101
  3. TOPAMAX [Concomitant]
     Indication: MIGRAINE PROPHYLAXIS
     Route: 048
     Dates: start: 20120101
  4. AMBIEN [Concomitant]
     Indication: SLEEP DISORDER THERAPY
     Route: 065
     Dates: start: 20000101
  5. PERCOCET [Concomitant]
     Indication: PAIN
     Route: 065
     Dates: start: 20090101
  6. CYMBALTA [Concomitant]
     Indication: ANXIETY
     Route: 065
     Dates: start: 20120101
  7. XANAX [Concomitant]
     Indication: SLEEP DISORDER THERAPY
     Route: 065
     Dates: start: 20090101
  8. DILAUDID [Concomitant]
     Indication: MIGRAINE
     Route: 065
     Dates: start: 20110101
  9. DURAGESIC-100 [Suspect]
     Indication: INTERVERTEBRAL DISC DEGENERATION
     Route: 062
     Dates: start: 20120511

REACTIONS (3)
  - WRONG TECHNIQUE IN DRUG USAGE PROCESS [None]
  - PRODUCT QUALITY ISSUE [None]
  - DRUG ADMINISTERED AT INAPPROPRIATE SITE [None]
